FAERS Safety Report 9874270 (Version 2)
Quarter: 2014Q1

REPORT INFORMATION
  Report Type: Spontaneous
  Country: US (occurrence: US)
  Receive Date: 20140206
  Receipt Date: 20140206
  Transmission Date: 20141002
  Serious: No
  Sender: FDA-Public Use
  Company Number: US-ACORDA-ACO_34957_2013

PATIENT
  Sex: Female

DRUGS (2)
  1. AMPYRA [Suspect]
     Indication: PRODUCT USED FOR UNKNOWN INDICATION
     Dosage: 10 MG, Q 12 HRS
     Dates: start: 20121002
  2. AMPYRA [Suspect]
     Dosage: 10 MG, QD

REACTIONS (4)
  - Chest discomfort [Unknown]
  - Muscle tightness [Unknown]
  - Restless legs syndrome [Unknown]
  - Tremor [Unknown]
